FAERS Safety Report 7628653-5 (Version None)
Quarter: 2011Q3

REPORT INFORMATION
  Report Type: 
  Country: None (occurrence: None)
  Receive Date: 20110722
  Receipt Date: 20110714
  Transmission Date: 20111222
  Serious: Yes (Other)
  Sender: FDA-Public Use
  Company Number: US-NOVOPROD-331853

PATIENT
  Sex: Male
  Weight: 39.9 kg

DRUGS (2)
  1. NORDITROPIN FLEXPRO [Suspect]
     Indication: DWARFISM
     Dosage: 15 MG, UNK
     Route: 058
     Dates: start: 20110501, end: 20110708
  2. MOTRIN [Concomitant]
     Indication: PAIN

REACTIONS (1)
  - MASS [None]
